FAERS Safety Report 7314730-5 (Version None)
Quarter: 2011Q1

REPORT INFORMATION
  Report Type: 
  Country: None (occurrence: None)
  Receive Date: 20110225
  Receipt Date: 20101206
  Transmission Date: 20110831
  Serious: No
  Sender: FDA-Public Use
  Company Number: US-MYLANLABS-2010S1021379

PATIENT
  Age: 32 Year
  Sex: Male
  Weight: 63.5 kg

DRUGS (1)
  1. AMNESTEEM [Suspect]
     Indication: STEATOCYSTOMA MULTIPLEX

REACTIONS (2)
  - LIP DRY [None]
  - DRY SKIN [None]
